FAERS Safety Report 5224225-0 (Version None)
Quarter: 2007Q1

REPORT INFORMATION
  Report Type: 
  Country: None (occurrence: None)
  Receive Date: 20070130
  Receipt Date: 20070129
  Transmission Date: 20070707
  Serious: Yes (Hospitalization, Other)
  Sender: FDA-Public Use
  Company Number: TR-BRISTOL-MYERS SQUIBB COMPANY-13660816

PATIENT
  Age: 40 Year
  Sex: Male

DRUGS (2)
  1. CYCLOPHOSPHAMIDE [Suspect]
     Indication: SINUSITIS
  2. CORTICOSTEROID [Suspect]
     Indication: SINUSITIS

REACTIONS (1)
  - HEPATITIS [None]
